FAERS Safety Report 8121648-7 (Version None)
Quarter: 2012Q1

REPORT INFORMATION
  Report Type: 
  Country: None (occurrence: None)
  Receive Date: 20120208
  Receipt Date: 20120208
  Transmission Date: 20120608
  Serious: No
  Sender: FDA-Public Use
  Company Number: None

PATIENT
  Age: 56 Year
  Sex: Male
  Weight: 97.522 kg

DRUGS (1)
  1. LEVOFLOXACIN [Suspect]
     Dates: start: 20120201, end: 20120202

REACTIONS (2)
  - URTICARIA [None]
  - DRUG HYPERSENSITIVITY [None]
